FAERS Safety Report 5876706-4 (Version None)
Quarter: 2008Q3

REPORT INFORMATION
  Report Type: 
  Country: None (occurrence: None)
  Receive Date: 20080910
  Receipt Date: 20080904
  Transmission Date: 20090109
  Serious: Yes (Other)
  Sender: FDA-Public Use
  Company Number: NL-TEVA-172918ISR

PATIENT
  Sex: Male
  Weight: 65 kg

DRUGS (1)
  1. METHOTREXATE SODIUM 2.5MG TABLETS [Suspect]
     Indication: POLYARTHRITIS
     Dates: start: 20060428, end: 20060901

REACTIONS (3)
  - DEPERSONALISATION [None]
  - DYSGEUSIA [None]
  - NAUSEA [None]
